FAERS Safety Report 5211647-7 (Version None)
Quarter: 2007Q1

REPORT INFORMATION
  Report Type: 
  Country: None (occurrence: None)
  Receive Date: 20070116
  Receipt Date: 20070116
  Transmission Date: 20070707
  Serious: Yes (Hospitalization)
  Sender: FDA-Public Use
  Company Number: None

PATIENT
  Sex: Female
  Weight: 64 kg

DRUGS (1)
  1. TAMOXIFEN CITRATE [Suspect]
     Indication: BREAST CANCER
     Dosage: 20MG 1 P.O.
     Route: 048
     Dates: start: 20020130

REACTIONS (5)
  - COLON CANCER [None]
  - HAEMATOCHEZIA [None]
  - INTESTINAL ISCHAEMIA [None]
  - MESENTERIC VEIN THROMBOSIS [None]
  - POSTOPERATIVE ILEUS [None]
